FAERS Safety Report 10854749 (Version 1)
Quarter: 2015Q1

REPORT INFORMATION
  Report Type: Spontaneous
  Country: US (occurrence: None)
  Receive Date: 20150218
  Receipt Date: 20150218
  Transmission Date: 20150721
  Serious: Yes (Other)
  Sender: FDA-Public Use
  Company Number: None

PATIENT
  Age: 12 Year
  Sex: Female
  Weight: 44 kg

DRUGS (1)
  1. SUPPRELIN [Suspect]
     Active Substance: HISTRELIN ACETATE
     Dates: start: 20150129

REACTIONS (16)
  - Ear pruritus [None]
  - Application site erythema [None]
  - Application site pruritus [None]
  - Deformity [None]
  - Insomnia [None]
  - Urticaria [None]
  - Ear swelling [None]
  - Swelling [None]
  - Application site swelling [None]
  - Swelling face [None]
  - Application site pain [None]
  - Dermatitis contact [None]
  - Product quality issue [None]
  - Emotional distress [None]
  - Erythema [None]
  - Pruritus [None]

NARRATIVE: CASE EVENT DATE: 20150129
